FAERS Safety Report 6357461-0 (Version None)
Quarter: 2009Q3

REPORT INFORMATION
  Report Type: 
  Country: None (occurrence: None)
  Receive Date: 20090916
  Receipt Date: 20090914
  Transmission Date: 20100115
  Serious: Yes (Hospitalization, Other)
  Sender: FDA-Public Use
  Company Number: US-TEVA-209170USA

PATIENT
  Age: 78 Year
  Sex: Male

DRUGS (1)
  1. HYDRALAZINE HCL TABLET 25MG [Suspect]

REACTIONS (6)
  - FINGER AMPUTATION [None]
  - GANGRENE [None]
  - HAEMATURIA [None]
  - LEUKOCYTOCLASTIC VASCULITIS [None]
  - OSTEOARTHRITIS [None]
  - PERIPHERAL ISCHAEMIA [None]
